FAERS Safety Report 6376454-0 (Version None)
Quarter: 2009Q3

REPORT INFORMATION
  Report Type: 
  Country: None (occurrence: None)
  Receive Date: 20090921
  Receipt Date: 20090911
  Transmission Date: 20100115
  Serious: Yes (Death)
  Sender: FDA-Public Use
  Company Number: FABR-1000981

PATIENT
  Age: 55 Year
  Sex: Male
  Weight: 91.6 kg

DRUGS (8)
  1. FABRAZYME [Suspect]
     Indication: FABRY'S DISEASE
     Dosage: 90 MG, Q2W, INTRAVENOUS
     Route: 042
     Dates: start: 20060309, end: 20090803
  2. FABRAZYME [Suspect]
  3. WARFARIN SODIUM [Concomitant]
  4. ASPIRIN [Concomitant]
  5. BUMETANIDE [Concomitant]
  6. LOSARTAN POTASSIUM [Concomitant]
  7. PERINDOPRIL ERBUMINE [Concomitant]
  8. LEVOTHYROXINE SODIUM [Concomitant]

REACTIONS (2)
  - MALAISE [None]
  - SUDDEN DEATH [None]
